FAERS Safety Report 21065030 (Version 2)
Quarter: 2022Q3

REPORT INFORMATION
  Report Type: Spontaneous
  Country: CN (occurrence: CN)
  Receive Date: 20220711
  Receipt Date: 20220721
  Transmission Date: 20221027
  Serious: Yes (Life-Threatening, Other)
  Sender: FDA-Public Use
  Company Number: CN-TAKEDA-2022TUS045991

PATIENT
  Age: 81 Year
  Sex: Male

DRUGS (1)
  1. ALBUMIN HUMAN [Suspect]
     Active Substance: ALBUMIN HUMAN
     Indication: Immunodeficiency
     Dosage: 0.4 GRAM, QD
     Route: 041
     Dates: start: 20210202, end: 20210202

REACTIONS (3)
  - Seizure [Recovering/Resolving]
  - Tachypnoea [Recovering/Resolving]
  - Dyspnoea [Recovering/Resolving]

NARRATIVE: CASE EVENT DATE: 20210202
